FAERS Safety Report 7953627-4 (Version None)
Quarter: 2011Q4

REPORT INFORMATION
  Report Type: 
  Country: None (occurrence: None)
  Receive Date: 20111202
  Receipt Date: 20111124
  Transmission Date: 20120403
  Serious: Yes (Death)
  Sender: FDA-Public Use
  Company Number: EC-ELI_LILLY_AND_COMPANY-EC201111008609

PATIENT
  Age: 55 Year
  Sex: Female

DRUGS (3)
  1. HUMALOG [Suspect]
     Dosage: 15 IU, EACH EVENING
     Dates: start: 20110910
  2. HUMALOG [Suspect]
     Indication: TYPE 2 DIABETES MELLITUS
     Dosage: 25 IU, EACH MORNING
     Dates: start: 20110910
  3. GALVUS [Concomitant]
     Dosage: UNK, QD

REACTIONS (1)
  - DIABETIC COMPLICATION [None]
